FAERS Safety Report 5755864-6 (Version None)
Quarter: 2008Q2

REPORT INFORMATION
  Report Type: 
  Country: None (occurrence: None)
  Receive Date: 20080529
  Receipt Date: 20080515
  Transmission Date: 20081010
  Serious: Yes (Hospitalization)
  Sender: FDA-Public Use
  Company Number: 2008BI006936

PATIENT
  Age: 55 Year
  Sex: Male

DRUGS (1)
  1. AVONEX [Suspect]
     Indication: MULTIPLE SCLEROSIS
     Dosage: 30 UG;QW;IM
     Route: 030
     Dates: start: 20020301

REACTIONS (4)
  - CORONARY ARTERY DISEASE [None]
  - FEMORAL ARTERY DISSECTION [None]
  - PERITONEAL HAEMORRHAGE [None]
  - PROCEDURAL COMPLICATION [None]
